FAERS Safety Report 23606807 (Version 2)
Quarter: 2024Q1

REPORT INFORMATION
  Report Type: Spontaneous
  Country: US (occurrence: US)
  Receive Date: 20240307
  Receipt Date: 20240312
  Transmission Date: 20240410
  Serious: Yes (Hospitalization, Other)
  Sender: FDA-Public Use
  Company Number: US-ABBVIE-5668421

PATIENT
  Age: 71 Year
  Sex: Male

DRUGS (1)
  1. SKYRIZI [Suspect]
     Active Substance: RISANKIZUMAB-RZAA
     Indication: Psoriasis
     Dosage: UNKNOWN
     Route: 058
     Dates: start: 20240208

REACTIONS (1)
  - Vascular graft [Not Recovered/Not Resolved]

NARRATIVE: CASE EVENT DATE: 20240301
